FAERS Safety Report 7769803-X (Version None)
Quarter: 2011Q3

REPORT INFORMATION
  Report Type: 
  Country: None (occurrence: None)
  Receive Date: 20110922
  Receipt Date: 20100804
  Transmission Date: 20111222
  Serious: No
  Sender: FDA-Public Use
  Company Number: US-ASTRAZENECA-2010SE36416

PATIENT
  Age: 44 Year
  Sex: Female

DRUGS (2)
  1. SEROQUEL [Suspect]
     Indication: BIPOLAR I DISORDER
     Dosage: 200 MG TO 300 MG
     Route: 048
     Dates: start: 20080101
  2. SEROQUEL [Suspect]
     Indication: DEPRESSION
     Dosage: 200 MG TO 300 MG
     Route: 048
     Dates: start: 20080101

REACTIONS (4)
  - AMBLYOPIA [None]
  - EYE PAIN [None]
  - TARDIVE DYSKINESIA [None]
  - WEIGHT INCREASED [None]
